FAERS Safety Report 5165299-5 (Version None)
Quarter: 2006Q4

REPORT INFORMATION
  Report Type: 
  Country: None (occurrence: None)
  Receive Date: 20061124
  Receipt Date: 20061113
  Transmission Date: 20070319
  Serious: Yes (Hospitalization)
  Sender: FDA-Public Use
  Company Number: 2006142721

PATIENT
  Age: 55 Year
  Sex: Female

DRUGS (4)
  1. ATARAX [Suspect]
     Dosage: 75 MG (1 IN 1 D) ORAL
     Route: 048
     Dates: start: 20061005, end: 20061010
  2. CLOZAPINE [Suspect]
     Indication: SCHIZOPHRENIA
     Dosage: 200 MG ORAL
     Route: 048
     Dates: start: 20060825, end: 20061005
  3. DEPAKENE [Suspect]
     Indication: GRAND MAL CONVULSION
     Dosage: 1 GRAM (1 IN 1 D) ORAL
     Route: 048
     Dates: start: 20060921, end: 20061010
  4. GLOBAZAM [Concomitant]

REACTIONS (6)
  - ANAEMIA [None]
  - C-REACTIVE PROTEIN INCREASED [None]
  - GRAND MAL CONVULSION [None]
  - MYELODYSPLASTIC SYNDROME [None]
  - NEUTROPENIA [None]
  - PNEUMONIA LEGIONELLA [None]
